FAERS Safety Report 10270960 (Version 1)
Quarter: 2014Q3

REPORT INFORMATION
  Report Type: Report from Study
  Country: ES (occurrence: ES)
  Receive Date: 20140701
  Receipt Date: 20140701
  Transmission Date: 20150326
  Serious: Yes (Hospitalization, Other)
  Sender: FDA-Public Use
  Company Number: ES-GLAXOSMITHKLINE-B1008583A

PATIENT
  Age: 71 Year
  Sex: Male

DRUGS (1)
  1. DABRAFENIB [Suspect]
     Active Substance: DABRAFENIB
     Indication: METASTATIC MALIGNANT MELANOMA
     Dosage: 150MG TWICE PER DAY
     Route: 048
     Dates: start: 20121220

REACTIONS (9)
  - Urinary retention [Unknown]
  - Decreased appetite [Unknown]
  - General physical health deterioration [Unknown]
  - Asthenia [Unknown]
  - Dry skin [Unknown]
  - Renal failure acute [Unknown]
  - Pancreatitis [Unknown]
  - Neurological decompensation [Unknown]
  - Asthenia [Unknown]

NARRATIVE: CASE EVENT DATE: 20121231
